FAERS Safety Report 4457476-3 (Version None)
Quarter: 2004Q3

REPORT INFORMATION
  Report Type: 
  Country: None (occurrence: None)
  Receive Date: 20040922
  Receipt Date: 20040909
  Transmission Date: 20050211
  Serious: Yes (Hospitalization)
  Sender: FDA-Public Use
  Company Number: 8007267

PATIENT
  Age: 83 Year
  Sex: Female
  Weight: 63.63 kg

DRUGS (7)
  1. KEPPRA [Suspect]
     Indication: CONVULSION
     Dosage: 500 MG 2/D PO
     Route: 048
     Dates: start: 20020101
  2. DEPAKOTE [Suspect]
     Indication: CONVULSION
     Dosage: 500 MG 4/D PO
     Route: 048
     Dates: start: 20040401
  3. ANTIBIOTIC [Concomitant]
  4. THYROID REPLACEMENT [Concomitant]
  5. AMARYL [Concomitant]
  6. HEPARIN [Concomitant]
  7. CALCIUM SUPPLEMENT [Concomitant]

REACTIONS (20)
  - BRAIN ABSCESS [None]
  - BRAIN MASS [None]
  - COGNITIVE DISORDER [None]
  - CONDITION AGGRAVATED [None]
  - CONFUSIONAL STATE [None]
  - DEEP VEIN THROMBOSIS [None]
  - DEMENTIA ALZHEIMER'S TYPE [None]
  - DEPRESSION [None]
  - DYSGRAPHIA [None]
  - DYSKINESIA [None]
  - FATIGUE [None]
  - GRAND MAL CONVULSION [None]
  - IRRITABILITY [None]
  - MEDICATION ERROR [None]
  - MOBILITY DECREASED [None]
  - MOVEMENT DISORDER [None]
  - PARKINSON'S DISEASE [None]
  - SHUNT INFECTION [None]
  - SPEECH DISORDER [None]
  - TREMOR [None]
